FAERS Safety Report 14104255 (Version 2)
Quarter: 2018Q1

REPORT INFORMATION
  Report Type: Spontaneous
  Country: SE (occurrence: SE)
  Receive Date: 20171018
  Receipt Date: 20180206
  Transmission Date: 20180508
  Serious: Yes (Other)
  Sender: FDA-Public Use
  Company Number: SE-JNJFOC-20171014129

PATIENT
  Age: 35 Year
  Sex: Female
  Weight: 62 kg

DRUGS (6)
  1. PAROXETINE. [Concomitant]
     Active Substance: PAROXETINE
     Route: 065
  2. CONCERTA [Suspect]
     Active Substance: METHYLPHENIDATE HYDROCHLORIDE
     Indication: ATTENTION DEFICIT/HYPERACTIVITY DISORDER
     Route: 065
     Dates: start: 20170904, end: 20170915
  3. PAROXETINE. [Concomitant]
     Active Substance: PAROXETINE
     Route: 065
  4. ELVANSE [Suspect]
     Active Substance: LISDEXAMFETAMINE DIMESYLATE
     Indication: ATTENTION DEFICIT/HYPERACTIVITY DISORDER
     Route: 065
     Dates: start: 20170918, end: 20170926
  5. PAROXETINE. [Concomitant]
     Active Substance: PAROXETINE
     Route: 065
     Dates: end: 201708
  6. PAROXETINE. [Concomitant]
     Active Substance: PAROXETINE
     Route: 065

REACTIONS (12)
  - Impatience [Not Recovered/Not Resolved]
  - Mood swings [Recovered/Resolved]
  - Anxiety [Recovered/Resolved]
  - Irritability [Not Recovered/Not Resolved]
  - Dissociation [Recovered/Resolved]
  - Migraine [Unknown]
  - Limb discomfort [Recovered/Resolved]
  - Formication [Recovered/Resolved]
  - Anger [Not Recovered/Not Resolved]
  - Myalgia [Not Recovered/Not Resolved]
  - Affect lability [Recovered/Resolved]
  - Abdominal pain [Not Recovered/Not Resolved]

NARRATIVE: CASE EVENT DATE: 201709
